FAERS Safety Report 21145471 (Version 1)
Quarter: 2022Q3

REPORT INFORMATION
  Report Type: Report from Study
  Country: US (occurrence: US)
  Receive Date: 20220729
  Receipt Date: 20220729
  Transmission Date: 20221026
  Serious: Yes (Death, Other)
  Sender: FDA-Public Use
  Company Number: US-SUN PHARMACEUTICAL INDUSTRIES LTD-2022R1-346054

PATIENT

DRUGS (1)
  1. GEMCITABINE [Suspect]
     Active Substance: GEMCITABINE
     Indication: Neoplasm progression
     Dosage: UNK
     Route: 065

REACTIONS (2)
  - Death [Fatal]
  - Therapeutic response decreased [Unknown]
